FAERS Safety Report 7015982-1 (Version None)
Quarter: 2010Q3

REPORT INFORMATION
  Report Type: 
  Country: None (occurrence: None)
  Receive Date: 20100927
  Receipt Date: 20100602
  Transmission Date: 20110219
  Serious: No
  Sender: FDA-Public Use
  Company Number: US-ASTRAZENECA-2010SE25758

PATIENT
  Age: 76 Year
  Sex: Female

DRUGS (3)
  1. ARIMIDEX [Suspect]
     Indication: BREAST CANCER
     Route: 048
     Dates: start: 20100501
  2. ZOCOR [Concomitant]
  3. MICARDIS [Concomitant]
     Indication: BLOOD PRESSURE ABNORMAL

REACTIONS (4)
  - ASTHENIA [None]
  - HOT FLUSH [None]
  - MUSCLE SPASMS [None]
  - SKIN ODOUR ABNORMAL [None]
